FAERS Safety Report 11225427 (Version 2)
Quarter: 2015Q4

REPORT INFORMATION
  Report Type: Report from Study
  Country: US (occurrence: US)
  Receive Date: 20150629
  Receipt Date: 20151112
  Transmission Date: 20160304
  Serious: Yes (Other)
  Sender: FDA-Public Use
  Company Number: US-SA-2014SA076811

PATIENT
  Age: 73 Year
  Sex: Female
  Weight: 104 kg

DRUGS (3)
  1. COPAXONE [Concomitant]
     Active Substance: GLATIRAMER ACETATE
  2. AUBAGIO [Suspect]
     Active Substance: TERIFLUNOMIDE
     Indication: MULTIPLE SCLEROSIS
     Route: 048
     Dates: start: 20140612, end: 20140806
  3. AUBAGIO [Suspect]
     Active Substance: TERIFLUNOMIDE
     Indication: MULTIPLE SCLEROSIS
     Route: 048
     Dates: start: 20140807

REACTIONS (17)
  - Fatigue [Unknown]
  - Alopecia [Unknown]
  - Balance disorder [Unknown]
  - Paraesthesia [Unknown]
  - Arthropathy [Unknown]
  - Urine odour abnormal [Unknown]
  - Musculoskeletal pain [Unknown]
  - Dry skin [Not Recovered/Not Resolved]
  - Alopecia [Recovering/Resolving]
  - Arthralgia [Unknown]
  - Limb discomfort [Unknown]
  - Pruritus [Unknown]
  - Gait disturbance [Unknown]
  - Urinary tract infection [Recovered/Resolved]
  - Hypertonic bladder [Unknown]
  - Pruritus [Not Recovered/Not Resolved]
  - Impaired driving ability [Unknown]

NARRATIVE: CASE EVENT DATE: 20140929
